FAERS Safety Report 7424554-6 (Version None)
Quarter: 2011Q2

REPORT INFORMATION
  Report Type: 
  Country: None (occurrence: None)
  Receive Date: 20110419
  Receipt Date: 20110411
  Transmission Date: 20111010
  Serious: Yes (Death)
  Sender: FDA-Public Use
  Company Number: IT-MPIJNJ-2011-01513

PATIENT

DRUGS (8)
  1. ACYCLOVIR [Concomitant]
     Indication: PROPHYLAXIS
     Dosage: 200 MG, CYCLIC
  2. VELCADE [Suspect]
     Indication: AMYLOIDOSIS
     Dosage: 1.3 MG/M2, CYCLIC
  3. DIPHENHYDRAMINE [Concomitant]
     Indication: PROPHYLAXIS
     Dosage: 50 MG, CYCLIC
  4. CIPROFLOXACIN [Concomitant]
     Indication: PROPHYLAXIS
     Dosage: 250 UNK, UNK
  5. DEXAMETHASONE [Suspect]
     Indication: AMYLOIDOSIS
     Dosage: 20 MG, CYCLIC
  6. RITUXIMAB [Suspect]
     Indication: AMYLOIDOSIS
     Dosage: 375 MG/M2, CYCLIC
  7. OMEPRAZOLE [Concomitant]
     Indication: PROPHYLAXIS
     Dosage: 20 MG, CYCLIC
  8. ACETAMINOPHEN [Concomitant]
     Indication: PROPHYLAXIS
     Dosage: 1 G, CYCLIC

REACTIONS (1)
  - LUNG CANCER METASTATIC [None]
